FAERS Safety Report 8450293-9 (Version None)
Quarter: 2012Q2

REPORT INFORMATION
  Report Type: 
  Country: None (occurrence: None)
  Receive Date: 20120620
  Receipt Date: 20120607
  Transmission Date: 20120825
  Serious: Yes (Hospitalization, Other)
  Sender: FDA-Public Use
  Company Number: JP-VERTEX PHARMACEUTICALS INC.-AE-2012-008715

PATIENT
  Age: 66 Year
  Sex: Male

DRUGS (18)
  1. REBAMIPIDE [Concomitant]
     Route: 048
  2. TELAVIC (TELAPREVIR) [Suspect]
     Indication: HEPATITIS C
     Route: 048
     Dates: start: 20120306, end: 20120423
  3. PEG-INTRON [Concomitant]
     Route: 051
     Dates: start: 20120514
  4. PROMACTA [Concomitant]
     Route: 048
     Dates: start: 20120306
  5. UBIRON [Concomitant]
     Route: 048
  6. PEG-INTRON [Concomitant]
     Indication: HEPATITIS C
     Route: 051
     Dates: start: 20120306, end: 20120513
  7. RIBAVIRIN [Concomitant]
     Indication: HEPATITIS C
     Route: 048
     Dates: start: 20120306, end: 20120318
  8. RIBAVIRIN [Concomitant]
     Route: 048
     Dates: start: 20120501, end: 20120528
  9. LENDEN D [Concomitant]
     Route: 048
     Dates: start: 20120307
  10. TELAVIC (TELAPREVIR) [Suspect]
     Route: 048
     Dates: start: 20120508, end: 20120508
  11. RIBAVIRIN [Concomitant]
     Route: 048
     Dates: start: 20120319, end: 20120430
  12. RIBAVIRIN [Concomitant]
     Route: 048
     Dates: start: 20120529
  13. BISOPROLOL FUMARATE [Concomitant]
     Route: 048
     Dates: end: 20120323
  14. LOSARTAN POTASSIUM [Concomitant]
     Route: 048
     Dates: start: 20120427
  15. EPADEL S [Concomitant]
     Route: 048
     Dates: start: 20120306
  16. NIZATIDINE [Concomitant]
     Route: 048
     Dates: start: 20120306
  17. ELIETEN [Concomitant]
     Route: 048
     Dates: start: 20120313
  18. TELAVIC (TELAPREVIR) [Suspect]
     Route: 048
     Dates: start: 20120424, end: 20120507

REACTIONS (3)
  - NAUSEA [None]
  - HAEMOGLOBIN DECREASED [None]
  - RENAL IMPAIRMENT [None]
